FAERS Safety Report 6748288-6 (Version None)
Quarter: 2010Q2

REPORT INFORMATION
  Report Type: 
  Country: None (occurrence: None)
  Receive Date: 20100601
  Receipt Date: 20100521
  Transmission Date: 20101027
  Serious: No
  Sender: FDA-Public Use
  Company Number: US-BIOGENIDEC-2010BI017273

PATIENT
  Age: 43 Year
  Sex: Female

DRUGS (1)
  1. TYSABRI [Suspect]
     Indication: MULTIPLE SCLEROSIS
     Route: 042
     Dates: start: 20090727

REACTIONS (7)
  - APHASIA [None]
  - ARTHRALGIA [None]
  - CARPAL TUNNEL SYNDROME [None]
  - FATIGUE [None]
  - PAIN IN EXTREMITY [None]
  - TENDON DISORDER [None]
  - URINARY INCONTINENCE [None]
